FAERS Safety Report 13694024 (Version 1)
Quarter: 2017Q2

REPORT INFORMATION
  Report Type: Spontaneous
  Country: US (occurrence: US)
  Receive Date: 20170627
  Receipt Date: 20170627
  Transmission Date: 20170830
  Serious: No
  Sender: FDA-Public Use
  Company Number: US-BAYER-2017-123142

PATIENT
  Age: 90 Year
  Sex: Male
  Weight: 53.97 kg

DRUGS (1)
  1. MIRALAX [Suspect]
     Active Substance: POLYETHYLENE GLYCOL 3350
     Indication: GASTROINTESTINAL DISORDER
     Dosage: 1 DOSE PER DAY DOSE
     Route: 048
     Dates: start: 201706, end: 20170625

REACTIONS (3)
  - Circumstance or information capable of leading to medication error [Unknown]
  - Frequent bowel movements [Unknown]
  - Drug effect delayed [Unknown]

NARRATIVE: CASE EVENT DATE: 20170626
